FAERS Safety Report 5249326-2 (Version None)
Quarter: 2007Q1

REPORT INFORMATION
  Report Type: 
  Country: None (occurrence: None)
  Receive Date: 20070228
  Receipt Date: 20070219
  Transmission Date: 20070707
  Serious: Yes (Death, Hospitalization)
  Sender: FDA-Public Use
  Company Number: KR-AVENTIS-200711457GDDC

PATIENT
  Age: 64 Year
  Sex: Female

DRUGS (3)
  1. DOCETAXEL [Suspect]
     Indication: NON-SMALL CELL LUNG CANCER
     Dosage: DOSE: 75 MG/M2
     Route: 042
     Dates: start: 20070124, end: 20070124
  2. AMITRIPTYLINE HCL [Concomitant]
     Dates: start: 20070103
  3. ACETATE [Concomitant]
     Dates: start: 20060101, end: 20070124

REACTIONS (2)
  - DIARRHOEA [None]
  - DYSPNOEA [None]
